FAERS Safety Report 9704005 (Version 1)
Quarter: 2013Q4

REPORT INFORMATION
  Report Type: Spontaneous
  Country: US (occurrence: US)
  Receive Date: 20131122
  Receipt Date: 20131122
  Transmission Date: 20140711
  Serious: Yes (Hospitalization)
  Sender: FDA-Public Use
  Company Number: US-BAYER-2013-141363

PATIENT
  Age: 28 Year
  Sex: Female
  Weight: 52.61 kg

DRUGS (19)
  1. YASMIN [Suspect]
  2. YAZ [Suspect]
  3. OCELLA [Suspect]
  4. DIFLUCAN [Concomitant]
  5. PREDNISONE [Concomitant]
  6. NYSTATIN [Concomitant]
  7. PROAIR HFA [Concomitant]
  8. CARAFATE [Concomitant]
  9. PROMETHAZINE [Concomitant]
  10. COLESTID [Concomitant]
  11. ANUSOL [ZINC SULFATE] [Concomitant]
  12. DOXYCYCLINE [Concomitant]
  13. METRONIDAZOLE [Concomitant]
  14. FOLIC ACID [Concomitant]
     Dosage: 1 MG, UNK
  15. SULFASALAZINE [Concomitant]
  16. HYOSCYAMINE [Concomitant]
  17. METHYLPREDNISOLONE [Concomitant]
  18. EFFEXOR XR [Concomitant]
  19. VENTOLIN [Concomitant]

REACTIONS (2)
  - Pulmonary embolism [Recovering/Resolving]
  - Deep vein thrombosis [None]
